FAERS Safety Report 9245413 (Version 1)
Quarter: 2013Q1

REPORT INFORMATION
  Report Type: Spontaneous
  Country: US (occurrence: None)
  Receive Date: 20121130
  Receipt Date: 20121130
  Transmission Date: 20140127
  Serious: Yes (Other)
  Sender: FDA-Public Use
  Company Number: 1204USA04592

PATIENT
  Age: 63 Year
  Sex: Female

DRUGS (2)
  1. FOSAMAX [Suspect]
     Indication: OSTEOPENIA
     Route: 048
     Dates: start: 20040128, end: 20050520
  2. MORPHINE (MORPHINE)) [Concomitant]

REACTIONS (4)
  - Osteonecrosis of jaw [None]
  - Axillary pain [None]
  - Breast pain [None]
  - Toothache [None]
